FAERS Safety Report 4399670-6 (Version None)
Quarter: 2004Q3

REPORT INFORMATION
  Report Type: 
  Country: None (occurrence: None)
  Receive Date: 20040716
  Receipt Date: 20040707
  Transmission Date: 20050211
  Serious: Yes (Other)
  Sender: FDA-Public Use
  Company Number: TR-ROCHE-373331

PATIENT
  Age: 39 Year
  Sex: Female

DRUGS (3)
  1. DIAZEPAM [Suspect]
     Indication: DRUG USE FOR UNKNOWN INDICATION
     Route: 065
  2. VENLAFAXINE HCL [Interacting]
     Indication: MAJOR DEPRESSION
     Route: 065
  3. VENLAFAXINE HCL [Interacting]
     Route: 065

REACTIONS (2)
  - DRUG INTERACTION [None]
  - HYPOTENSION [None]
